FAERS Safety Report 6186928-3 (Version None)
Quarter: 2009Q2

REPORT INFORMATION
  Report Type: 
  Country: None (occurrence: None)
  Receive Date: 20090508
  Receipt Date: 20090508
  Transmission Date: 20091009
  Serious: Yes (Other)
  Sender: FDA-Public Use
  Company Number: None

PATIENT
  Age: 57 Year
  Sex: Male
  Weight: 63.5036 kg

DRUGS (1)
  1. NUBAIN [Suspect]
     Dates: start: 20090401, end: 20090401

REACTIONS (4)
  - CHILLS [None]
  - FEELING COLD [None]
  - LETHARGY [None]
  - PALLOR [None]
